FAERS Safety Report 7286977-8 (Version None)
Quarter: 2011Q1

REPORT INFORMATION
  Report Type: 
  Country: None (occurrence: None)
  Receive Date: 20110211
  Receipt Date: 20110124
  Transmission Date: 20110831
  Serious: No
  Sender: FDA-Public Use
  Company Number: US-BIOGENIDEC-2011BI003698

PATIENT
  Age: 36 Year
  Sex: Female

DRUGS (1)
  1. TYSABRI [Suspect]
     Indication: MULTIPLE SCLEROSIS
     Route: 042
     Dates: start: 20090203

REACTIONS (7)
  - HYPOTENSION [None]
  - VAGINAL INFECTION [None]
  - URTICARIA [None]
  - DRY THROAT [None]
  - PAIN IN EXTREMITY [None]
  - TONGUE BLISTERING [None]
  - HEADACHE [None]
